FAERS Safety Report 6287684-0 (Version None)
Quarter: 2009Q3

REPORT INFORMATION
  Report Type: 
  Country: None (occurrence: None)
  Receive Date: 20090727
  Receipt Date: 20090727
  Transmission Date: 20100115
  Serious: No
  Sender: FDA-Public Use
  Company Number: None

PATIENT
  Age: 50 Year
  Sex: Female
  Weight: 104.3273 kg

DRUGS (6)
  1. ZYCAM SPRAY [Suspect]
     Indication: HYPERSENSITIVITY
     Dates: start: 20070301, end: 20070305
  2. ZYCAM SPRAY [Suspect]
     Indication: NASOPHARYNGITIS
     Dates: start: 20070301, end: 20070305
  3. ZYCAM SPRAY [Suspect]
     Indication: SINUSITIS
     Dates: start: 20070301, end: 20070305
  4. ZYCAM SPRAY [Suspect]
     Indication: HYPERSENSITIVITY
     Dates: start: 20071105, end: 20071110
  5. ZYCAM SPRAY [Suspect]
     Indication: NASOPHARYNGITIS
     Dates: start: 20071105, end: 20071110
  6. ZYCAM SPRAY [Suspect]
     Indication: SINUSITIS
     Dates: start: 20071105, end: 20071110

REACTIONS (2)
  - ANOSMIA [None]
  - BRAIN SCAN ABNORMAL [None]
